FAERS Safety Report 9501183 (Version 1)
Quarter: 2013Q3

REPORT INFORMATION
  Report Type: Report from Study
  Country: CA (occurrence: CA)
  Receive Date: 20130905
  Receipt Date: 20130905
  Transmission Date: 20140515
  Serious: Yes (Other)
  Sender: FDA-Public Use
  Company Number: CA-JNJFOC-20130817500

PATIENT
  Sex: Female

DRUGS (3)
  1. SIMPONI [Suspect]
     Indication: RHEUMATOID ARTHRITIS
     Route: 058
     Dates: start: 20120525, end: 20130706
  2. CELEBREX [Concomitant]
     Route: 048
  3. CELEXA [Concomitant]
     Route: 048

REACTIONS (1)
  - Laryngeal cancer [Unknown]
